FAERS Safety Report 9070236 (Version 1)
Quarter: 2013Q1

REPORT INFORMATION
  Report Type: Report from Study
  Country: US (occurrence: US)
  Receive Date: 20130215
  Receipt Date: 20130215
  Transmission Date: 20140127
  Serious: Yes (Other)
  Sender: FDA-Public Use
  Company Number: US-ABBOTT-12P-163-0912738-00

PATIENT
  Sex: Male

DRUGS (2)
  1. HUMIRA [Suspect]
     Indication: MATERNAL EXPOSURE TIMING UNSPECIFIED
     Route: 064
  2. HUMIRA [Suspect]
     Route: 063

REACTIONS (12)
  - Foetal heart rate deceleration [Recovered/Resolved]
  - Umbilical cord around neck [Recovered/Resolved]
  - Neonatal aspiration [Recovered/Resolved]
  - Nasal inflammation [Not Recovered/Not Resolved]
  - Nasal disorder [Not Recovered/Not Resolved]
  - Dyspnoea [Unknown]
  - Feeding disorder neonatal [Recovered/Resolved]
  - Exposure during breast feeding [Unknown]
  - Foetal exposure during pregnancy [Unknown]
  - Fatigue [Recovered/Resolved]
  - Breech presentation [Recovered/Resolved]
  - Umbilical cord abnormality [Recovered/Resolved]
